FAERS Safety Report 11392934 (Version 2)
Quarter: 2015Q4

REPORT INFORMATION
  Report Type: Spontaneous
  Country: US (occurrence: US)
  Receive Date: 20150818
  Receipt Date: 20151005
  Transmission Date: 20160304
  Serious: Yes (Other)
  Sender: FDA-Public Use
  Company Number: US-PFIZER INC-2015268225

PATIENT
  Age: 66 Year
  Sex: Male

DRUGS (6)
  1. ADVIL [Suspect]
     Active Substance: IBUPROFEN
     Indication: ACCIDENT
     Dosage: 400 MG, UNK
     Dates: start: 201412
  2. ALLI [Suspect]
     Active Substance: ORLISTAT
     Indication: WEIGHT LOSS DIET
     Dosage: UNK
     Route: 048
     Dates: end: 20150522
  3. ADVIL [Suspect]
     Active Substance: IBUPROFEN
     Indication: PAIN
     Dosage: 200 MG, 2X/DAY
     Dates: start: 201412
  4. ALEVE [Suspect]
     Active Substance: NAPROXEN SODIUM
     Indication: ACCIDENT
     Dosage: 220 MG, 3X/DAY
  5. ALLI [Suspect]
     Active Substance: ORLISTAT
     Dosage: 60 MG, UNK (ONCE OR TWICE DAILY)
     Dates: start: 201508
  6. ALEVE [Suspect]
     Active Substance: NAPROXEN SODIUM
     Indication: PAIN
     Dosage: 220 MG, 2X/DAY

REACTIONS (5)
  - Facial bones fracture [Recovered/Resolved]
  - Road traffic accident [Recovered/Resolved]
  - Gastric ulcer haemorrhage [Recovered/Resolved]
  - Abdominal pain upper [Not Recovered/Not Resolved]
  - Haematochezia [Recovered/Resolved]

NARRATIVE: CASE EVENT DATE: 201502
